FAERS Safety Report 19592982 (Version 1)
Quarter: 2021Q3

REPORT INFORMATION
  Report Type: Spontaneous
  Country: FR (occurrence: FR)
  Receive Date: 20210722
  Receipt Date: 20210722
  Transmission Date: 20211014
  Serious: Yes (Hospitalization)
  Sender: FDA-Public Use
  Company Number: FR-DRREDDYS-SPO/FRA/21/0137861

PATIENT
  Age: 22 Year
  Sex: Male

DRUGS (2)
  1. DOLIPRANE [Suspect]
     Active Substance: ACETAMINOPHEN
     Indication: ARTHRALGIA
     Dosage: 25/06/2021 : 16 CP DE 1G?26/06/2021 : 3 CP DE 1G ?SOIT 19G EN 24H
     Dates: start: 20210625, end: 20210626
  2. IBUPROFEN. [Suspect]
     Active Substance: IBUPROFEN
     Indication: ARTHRALGIA
     Dosage: PRISE : ?10 CP DE 400 MG?SOIT 4G EN 24H
     Dates: start: 20210626, end: 20210626

REACTIONS (3)
  - Hyperlipasaemia [Not Recovered/Not Resolved]
  - Incorrect dosage administered [Recovered/Resolved]
  - Accidental overdose [Recovered/Resolved]

NARRATIVE: CASE EVENT DATE: 20210625
